FAERS Safety Report 7018329-X (Version None)
Quarter: 2010Q3

REPORT INFORMATION
  Report Type: 
  Country: None (occurrence: None)
  Receive Date: 20100927
  Receipt Date: 20100927
  Transmission Date: 20110219
  Serious: Yes (Life-Threatening)
  Sender: FDA-Public Use
  Company Number: None

PATIENT
  Sex: Male
  Weight: 90.7194 kg

DRUGS (1)
  1. LEFLUNOMIDE [Suspect]

REACTIONS (4)
  - ARTHRALGIA [None]
  - INSOMNIA [None]
  - MOBILITY DECREASED [None]
  - PRODUCT SUBSTITUTION ISSUE [None]
